FAERS Safety Report 5054800-8 (Version None)
Quarter: 2006Q2

REPORT INFORMATION
  Report Type: 
  Country: None (occurrence: None)
  Receive Date: 20060614
  Receipt Date: 20060118
  Transmission Date: 20061013
  Serious: No
  Sender: FDA-Public Use
  Company Number: US200601003208

PATIENT
  Sex: Male

DRUGS (4)
  1. CIALIS [Suspect]
     Dosage: AS NEEDED
  2. PLAVIX [Concomitant]
  3. LISINOPRIL [Concomitant]
  4. ASA (ASPIRIN (ACETYLSALICYLIC ACID)) [Concomitant]

REACTIONS (1)
  - DRUG INEFFECTIVE [None]
